FAERS Safety Report 21988599 (Version 1)
Quarter: 2023Q1

REPORT INFORMATION
  Report Type: Spontaneous
  Country: CN (occurrence: CN)
  Receive Date: 20230214
  Receipt Date: 20230214
  Transmission Date: 20230417
  Serious: Yes (Hospitalization, Other)
  Sender: FDA-Public Use
  Company Number: None

PATIENT
  Age: 26 Year
  Sex: Male
  Weight: 48 kg

DRUGS (14)
  1. LINEZOLID [Suspect]
     Active Substance: LINEZOLID
     Indication: Tuberculosis
     Dosage: UNK
     Route: 065
  2. LINEZOLID [Suspect]
     Active Substance: LINEZOLID
     Indication: Tuberculosis
     Dosage: 300 MILLIGRAM, QD (DAILY FOR WEEKS) (DOSE REDUCED)
     Route: 065
  3. LINEZOLID [Suspect]
     Active Substance: LINEZOLID
     Indication: Tuberculosis
     Dosage: 600 MILLIGRAM, QD (DAILY)
     Route: 065
  4. BEDAQUILINE [Concomitant]
     Active Substance: BEDAQUILINE
     Indication: Tuberculosis
     Dosage: UNK
     Route: 065
     Dates: start: 2021
  5. BEDAQUILINE [Concomitant]
     Active Substance: BEDAQUILINE
     Indication: Tuberculosis
  6. BEDAQUILINE [Concomitant]
     Active Substance: BEDAQUILINE
     Indication: Tuberculosis
  7. CLOFAZIMINE [Concomitant]
     Active Substance: CLOFAZIMINE
     Indication: Tuberculosis
     Dosage: UNK
     Route: 065
  8. CLOFAZIMINE [Concomitant]
     Active Substance: CLOFAZIMINE
     Indication: Tuberculosis
  9. CLOFAZIMINE [Concomitant]
     Active Substance: CLOFAZIMINE
     Indication: Tuberculosis
  10. CYCLOSERINE [Concomitant]
     Active Substance: CYCLOSERINE
     Indication: Tuberculosis
     Dosage: UNK
     Route: 065
  11. CYCLOSERINE [Concomitant]
     Active Substance: CYCLOSERINE
     Indication: Tuberculosis
  12. CYCLOSERINE [Concomitant]
     Active Substance: CYCLOSERINE
     Indication: Tuberculosis
  13. PROTIONAMIDE [Concomitant]
     Active Substance: PROTIONAMIDE
     Indication: Tuberculosis
     Dosage: UNK
     Route: 065
  14. PROTIONAMIDE [Concomitant]
     Active Substance: PROTIONAMIDE
     Indication: Tuberculosis

REACTIONS (1)
  - Neuropathy peripheral [Recovered/Resolved]

NARRATIVE: CASE EVENT DATE: 20210101
